FAERS Safety Report 6343387-5 (Version None)
Quarter: 2009Q3

REPORT INFORMATION
  Report Type: 
  Country: None (occurrence: None)
  Receive Date: 20090908
  Receipt Date: 20090831
  Transmission Date: 20100115
  Serious: Yes (Life-Threatening, Hospitalization, Other)
  Sender: FDA-Public Use
  Company Number: PHHY2009JP33831

PATIENT
  Sex: Female
  Weight: 50 kg

DRUGS (7)
  1. VOLTAREN [Suspect]
     Indication: ANALGESIA
     Dosage: 25 MG, ONCE/SINGLE
     Route: 048
     Dates: start: 20081111, end: 20081111
  2. ALFAROL [Concomitant]
     Dosage: 0.25 UG, UNK
     Route: 048
  3. EVISTA [Concomitant]
     Dosage: 60 MG, UNK
     Route: 048
  4. ASPARA-CA [Concomitant]
     Dosage: 600 MG, UNK
     Route: 048
  5. CINAL [Concomitant]
     Dosage: 600 MG, UNK
     Route: 048
  6. MARZULENE S [Concomitant]
     Dosage: 1.5 G, UNK
     Route: 048
  7. FELBINAC [Concomitant]

REACTIONS (3)
  - FOAMING AT MOUTH [None]
  - HYPOAESTHESIA ORAL [None]
  - LOSS OF CONSCIOUSNESS [None]
